FAERS Safety Report 7021939-7 (Version None)
Quarter: 2010Q3

REPORT INFORMATION
  Report Type: 
  Country: None (occurrence: None)
  Receive Date: 20100930
  Receipt Date: 20100611
  Transmission Date: 20110219
  Serious: Yes (Life-Threatening, Other)
  Sender: FDA-Public Use
  Company Number: US-BAYER-201016878NA

PATIENT
  Age: 30 Year
  Sex: Female
  Weight: 137 kg

DRUGS (6)
  1. YASMIN [Suspect]
     Indication: PRODUCT USED FOR UNKNOWN INDICATION
     Route: 048
     Dates: start: 20080201, end: 20080701
  2. OCELLA [Suspect]
     Indication: PRODUCT USED FOR UNKNOWN INDICATION
     Route: 048
     Dates: start: 20080801, end: 20081201
  3. VITAMIN B [Concomitant]
     Indication: PRODUCT USED FOR UNKNOWN INDICATION
  4. AUGMENTIN '125' [Concomitant]
     Indication: CHEST PAIN
     Dates: start: 20081101
  5. AVELOX [Concomitant]
     Indication: PRODUCT USED FOR UNKNOWN INDICATION
     Dates: start: 20080101
  6. OVER-THE-COUNTER [Concomitant]
     Indication: MEDICAL DIET

REACTIONS (9)
  - CHEST PAIN [None]
  - COUGH [None]
  - FATIGUE [None]
  - LUNG DISORDER [None]
  - MENORRHAGIA [None]
  - METRORRHAGIA [None]
  - MIGRAINE [None]
  - PNEUMONIA [None]
  - PULMONARY EMBOLISM [None]
